FAERS Safety Report 4898337-5 (Version None)
Quarter: 2006Q1

REPORT INFORMATION
  Report Type: 
  Country: None (occurrence: None)
  Receive Date: 20060127
  Receipt Date: 20060106
  Transmission Date: 20060701
  Serious: Yes (Other)
  Sender: FDA-Public Use
  Company Number: US_0509121713

PATIENT
  Sex: Male
  Weight: 63.5 kg

DRUGS (1)
  1. ZYPREXA [Suspect]
     Dosage: 10 MG, ORAL
     Route: 048
     Dates: start: 19930101

REACTIONS (5)
  - DISEASE RECURRENCE [None]
  - HYPERTENSION [None]
  - LIVER DISORDER [None]
  - PANCREATITIS [None]
  - PARKINSON'S DISEASE [None]
